FAERS Safety Report 6595116-8 (Version None)
Quarter: 2010Q1

REPORT INFORMATION
  Report Type: 
  Country: None (occurrence: None)
  Receive Date: 20100212
  Receipt Date: 20100203
  Transmission Date: 20100710
  Serious: Yes (Life-Threatening)
  Sender: FDA-Public Use
  Company Number: FRP10000188

PATIENT
  Age: 67 Year
  Sex: Female

DRUGS (1)
  1. ACTONEL [Suspect]
     Indication: OSTEOPOROSIS
     Dosage: 35 MG, 1/WEEK, ORAL
     Route: 048
     Dates: start: 20070401, end: 20090801

REACTIONS (2)
  - HEPATIC NEOPLASM MALIGNANT [None]
  - PANCREATIC CARCINOMA [None]
